FAERS Safety Report 24715826 (Version 1)
Quarter: 2024Q4

REPORT INFORMATION
  Report Type: Spontaneous
  Country: JP (occurrence: JP)
  Receive Date: 20241210
  Receipt Date: 20241210
  Transmission Date: 20250115
  Serious: Yes (Death, Life-Threatening, Hospitalization, Other)
  Sender: JUBILANT
  Company Number: None

PATIENT
  Age: 79 Year
  Sex: Male

DRUGS (1)
  1. LEVOFLOXACIN [Suspect]
     Active Substance: LEVOFLOXACIN
     Indication: Inflammation
     Dosage: UNK, UNK, INTERMITTENTLY RECEIVED MULTIPLE 2-WEEK COURSES OF LEVOFLOXACIN
     Route: 065

REACTIONS (8)
  - Candida endophthalmitis [Fatal]
  - Graft infection [Fatal]
  - Cerebral artery embolism [Fatal]
  - Peripheral artery thrombosis [Unknown]
  - Venous thrombosis limb [Unknown]
  - Carotid artery thrombosis [Unknown]
  - Anaemia [Unknown]
  - Hepatic enzyme increased [Unknown]
